FAERS Safety Report 20189743 (Version 2)
Quarter: 2021Q4

REPORT INFORMATION
  Report Type: Spontaneous
  Country: JP (occurrence: JP)
  Receive Date: 20211215
  Receipt Date: 20211231
  Transmission Date: 20220303
  Serious: Yes (Other)
  Sender: FDA-Public Use
  Company Number: JP-PFIZER INC-202101699462

PATIENT

DRUGS (1)
  1. TOVIAZ [Suspect]
     Active Substance: FESOTERODINE FUMARATE
     Dosage: UNK
     Route: 048

REACTIONS (6)
  - Throat irritation [Unknown]
  - Cough [Unknown]
  - Sputum retention [Unknown]
  - Hypoaesthesia oral [Unknown]
  - Headache [Unknown]
  - Head discomfort [Unknown]
